FAERS Safety Report 17691047 (Version 2)
Quarter: 2020Q2

REPORT INFORMATION
  Report Type: Report from Study
  Country: KR (occurrence: KR)
  Receive Date: 20200422
  Receipt Date: 20200501
  Transmission Date: 20200714
  Serious: Yes (Death)
  Sender: FDA-Public Use
  Company Number: KR-CELLTRION INC.-2020KR021687

PATIENT

DRUGS (7)
  1. FEROBA-YOU SR [Concomitant]
     Indication: ANAEMIA
     Dosage: 512 MG, QD
     Route: 048
     Dates: start: 20191018, end: 20200304
  2. PANTOLOC [Concomitant]
     Active Substance: PANTOPRAZOLE SODIUM
     Indication: GASTROOESOPHAGEAL REFLUX DISEASE
     Dosage: 40 MG, QD
     Route: 042
     Dates: start: 20200211, end: 20200317
  3. MADIPINE [Concomitant]
     Indication: HYPERTENSION
     Dosage: 20 MG, QD
     Route: 048
     Dates: start: 20191115, end: 20200317
  4. TRUXIMA [Suspect]
     Active Substance: RITUXIMAB-ABBS
     Indication: MICROSCOPIC POLYANGIITIS
     Dosage: 500 MG, 1 WEEK(S)
     Route: 042
     Dates: start: 20191105, end: 20191126
  5. LASIX [Concomitant]
     Active Substance: FUROSEMIDE
     Indication: ACUTE KIDNEY INJURY
     Dosage: 20 MG, QD
     Route: 048
     Dates: start: 20191031, end: 20200304
  6. SEPTRIN [Concomitant]
     Active Substance: SULFAMETHOXAZOLE\TRIMETHOPRIM
     Indication: BACTERAEMIA
     Dosage: 1 TAB, QD
     Route: 048
     Dates: start: 20191028, end: 20200305
  7. CORTISOL [Concomitant]
     Active Substance: HYDROCORTISONE
     Indication: MICROSCOPIC POLYANGIITIS
     Dosage: 50 MG, BID
     Route: 042
     Dates: start: 20200211, end: 20200317

REACTIONS (1)
  - Acute kidney injury [Fatal]

NARRATIVE: CASE EVENT DATE: 20200316
